FAERS Safety Report 6446890-2 (Version None)
Quarter: 2009Q4

REPORT INFORMATION
  Report Type: 
  Country: None (occurrence: None)
  Receive Date: 20091119
  Receipt Date: 20091118
  Transmission Date: 20100525
  Serious: Yes (Other)
  Sender: FDA-Public Use
  Company Number: GR-JNJFOC-20091103150

PATIENT
  Age: 8 Year
  Sex: Male

DRUGS (4)
  1. REMICADE [Suspect]
     Dosage: 4TH INFUSION
     Route: 042
  2. REMICADE [Suspect]
     Indication: CROHN'S DISEASE
     Dosage: 3 INFUSIONS ON UNSPECIFIED DATES
     Route: 042
  3. VANCOMYCIN [Interacting]
     Indication: INFECTION
  4. ANTIBIOTICS [Interacting]
     Indication: INFECTION

REACTIONS (3)
  - ANGIOEDEMA [None]
  - DRUG INTERACTION [None]
  - INFECTION [None]
